FAERS Safety Report 5930969-5 (Version None)
Quarter: 2008Q4

REPORT INFORMATION
  Report Type: 
  Country: None (occurrence: None)
  Receive Date: 20081022
  Receipt Date: 20081014
  Transmission Date: 20090506
  Serious: Yes (Other)
  Sender: FDA-Public Use
  Company Number: ADE2008-0341

PATIENT
  Age: 39 Year
  Sex: Male

DRUGS (13)
  1. PAROXETINE HCL [Suspect]
     Indication: DEPRESSION
     Dosage: 20-60MG-QD
     Dates: start: 19981202
  2. ALFUZOSIN HCL [Concomitant]
  3. AMITRIPTYLINE HCL [Concomitant]
  4. DIAZEPAM [Concomitant]
  5. GABAPENTIN [Concomitant]
  6. MEBEVERINE [Concomitant]
  7. METOCLOPRAMIDE [Concomitant]
  8. OMEPRAZOLE [Concomitant]
  9. OXYBUTYNIN [Concomitant]
  10. ACETAMINOPHEN [Concomitant]
  11. IPRAZOSIN [Concomitant]
  12. TRAMADOL HCL [Concomitant]
  13. VENTOLIN [Concomitant]

REACTIONS (25)
  - AGGRESSION [None]
  - AGORAPHOBIA [None]
  - ANGER [None]
  - CLAUSTROPHOBIA [None]
  - DRUG DOSE OMISSION [None]
  - EMOTIONAL DISORDER [None]
  - FAMILY STRESS [None]
  - FEAR [None]
  - HYPOAESTHESIA [None]
  - HYPOSMIA [None]
  - NERVOUSNESS [None]
  - PARAESTHESIA [None]
  - PARANOIA [None]
  - PERONEAL NERVE PALSY [None]
  - POOR QUALITY SLEEP [None]
  - SOMNOLENCE [None]
  - SUICIDAL IDEATION [None]
  - SUICIDE ATTEMPT [None]
  - SURGICAL FAILURE [None]
  - SYNCOPE [None]
  - THINKING ABNORMAL [None]
  - TREATMENT NONCOMPLIANCE [None]
  - TREMOR [None]
  - WEIGHT INCREASED [None]
  - WITHDRAWAL SYNDROME [None]
